FAERS Safety Report 5360750-X (Version None)
Quarter: 2007Q2

REPORT INFORMATION
  Report Type: 
  Country: None (occurrence: None)
  Receive Date: 20070618
  Receipt Date: 20070611
  Transmission Date: 20071010
  Serious: Yes (Death)
  Sender: FDA-Public Use
  Company Number: LB-ASTRAZENECA-2006AC00324

PATIENT
  Age: 36 Year
  Sex: Female

DRUGS (12)
  1. PROPOFOL [Suspect]
     Indication: INTUBATION
     Route: 042
  2. PROPOFOL [Suspect]
     Indication: SEDATION
     Route: 042
  3. PROPOFOL [Suspect]
     Route: 042
  4. PROPOFOL [Suspect]
     Route: 042
  5. PROPOFOL [Suspect]
     Dosage: 3.6-4.8 MG/KG/H
     Route: 042
  6. PROPOFOL [Suspect]
     Dosage: 3.6-4.8 MG/KG/H
     Route: 042
  7. TOPIRAMATE [Concomitant]
     Indication: STATUS EPILEPTICUS
  8. BENZODIAZEPINES [Concomitant]
     Indication: STATUS EPILEPTICUS
  9. PHENOBARBITAL TAB [Concomitant]
     Indication: STATUS EPILEPTICUS
  10. VALPROIC ACID [Concomitant]
     Indication: STATUS EPILEPTICUS
  11. LORAZEPAM [Concomitant]
     Route: 042
  12. DIAZEPAM [Concomitant]
     Indication: CONVULSION

REACTIONS (5)
  - CARDIOMYOPATHY [None]
  - LACTIC ACIDOSIS [None]
  - PROPOFOL INFUSION SYNDROME [None]
  - RENAL FAILURE ACUTE [None]
  - RHABDOMYOLYSIS [None]
